FAERS Safety Report 14620959 (Version 7)
Quarter: 2018Q3

REPORT INFORMATION
  Report Type: Report from Study
  Country: None (occurrence: BR)
  Receive Date: 20180309
  Receipt Date: 20180727
  Transmission Date: 20181010
  Serious: Yes (Death, Life-Threatening, Hospitalization, Other)
  Sender: FDA-Public Use
  Company Number: BR-ABBVIE-18P-020-2279628-00

PATIENT
  Age: 89 Year
  Sex: Male

DRUGS (49)
  1. NORMAL SALINE SOLUTION [Concomitant]
     Route: 042
     Dates: start: 20180217, end: 20180217
  2. ADDERA D3 [Concomitant]
     Active Substance: CHOLECALCIFEROL
     Indication: VITAMIN D DEFICIENCY
     Route: 048
     Dates: start: 20180122, end: 20180305
  3. TEICOPLANINA [Concomitant]
     Active Substance: TEICOPLANIN
     Indication: SKIN INFECTION
     Route: 042
     Dates: start: 20180220, end: 20180221
  4. OMEPRAZOL [Concomitant]
     Active Substance: OMEPRAZOLE
     Indication: GASTRITIS PROPHYLAXIS
     Route: 048
     Dates: start: 20180215, end: 20180303
  5. MINERAL OIL. [Concomitant]
     Active Substance: MINERAL OIL
     Indication: CONSTIPATION
     Route: 048
     Dates: start: 20180217
  6. FUROSEMIDA [Concomitant]
     Active Substance: FUROSEMIDE
     Indication: PROPHYLAXIS
     Route: 042
     Dates: start: 20180227, end: 20180227
  7. DIPIRONE [Concomitant]
     Active Substance: METAMIZOLE SODIUM
     Indication: TRANSFUSION
     Route: 042
     Dates: start: 20180227, end: 20180227
  8. ALMEIDA PRADO 46 [Concomitant]
     Indication: CONSTIPATION
     Route: 048
     Dates: start: 2017, end: 20180214
  9. RASBURICASE [Concomitant]
     Active Substance: RASBURICASE
     Indication: PROPHYLAXIS
     Route: 042
     Dates: start: 20180215, end: 20180215
  10. PURAN [Concomitant]
     Active Substance: LEVOTHYROXINE SODIUM
     Indication: HYPOTHYROIDISM
     Route: 048
     Dates: start: 2014
  11. NORADRENALIN [Concomitant]
     Active Substance: NOREPINEPHRINE\NOREPINEPHRINE BITARTRATE
     Indication: SEDATION
     Dosage: CONTINUOUS INFUSION
     Route: 042
     Dates: start: 20180304, end: 20180323
  12. VENETOCLAX. [Suspect]
     Active Substance: VENETOCLAX
     Route: 048
     Dates: start: 20180216, end: 20180216
  13. ALLOPURINOL. [Concomitant]
     Active Substance: ALLOPURINOL
     Indication: PROPHYLAXIS
     Route: 048
     Dates: start: 20180215, end: 20180226
  14. DAFLON [Concomitant]
     Indication: PERIPHERAL VENOUS DISEASE
     Route: 048
     Dates: start: 2013, end: 20180305
  15. CEFEPIME [Concomitant]
     Active Substance: CEFEPIME HYDROCHLORIDE
     Indication: NEUTROPENIA
  16. PSYLLIUM [Concomitant]
     Active Substance: PLANTAGO SEED
     Indication: CONSTIPATION
     Route: 048
     Dates: start: 2000, end: 20180214
  17. VENETOCLAX. [Suspect]
     Active Substance: VENETOCLAX
     Route: 048
     Dates: start: 20180217, end: 20180303
  18. NORMAL SALINE SOLUTION [Concomitant]
     Route: 042
     Dates: start: 20180216, end: 20180216
  19. ACICLOVIR [Concomitant]
     Active Substance: ACYCLOVIR
     Indication: ANTIVIRAL PROPHYLAXIS
     Route: 048
     Dates: start: 20171220
  20. FUROSEMIDA [Concomitant]
     Active Substance: FUROSEMIDE
     Indication: TRANSFUSION
     Route: 042
     Dates: start: 20180301, end: 20180301
  21. CYTARABINE. [Suspect]
     Active Substance: CYTARABINE
     Indication: ACUTE MYELOID LEUKAEMIA
     Dosage: DAYS 1?10 OF 28?DAY CYCLE
     Route: 042
     Dates: start: 20180214, end: 20180223
  22. NORMAL SALINE SOLUTION [Concomitant]
     Indication: PROPHYLAXIS
     Route: 042
     Dates: start: 20180214, end: 20180214
  23. NORMAL SALINE SOLUTION [Concomitant]
     Indication: FLUID REPLACEMENT
     Route: 042
     Dates: start: 20180215, end: 20180215
  24. TEICOPLANINA [Concomitant]
     Active Substance: TEICOPLANIN
     Indication: NEUTROPENIA
     Dosage: 48/48H
     Route: 042
     Dates: start: 20180222, end: 20180317
  25. DERSANI [Concomitant]
     Indication: INFECTION PROPHYLAXIS
     Route: 061
     Dates: start: 20180221
  26. CIPROFLOXACIN. [Concomitant]
     Active Substance: CIPROFLOXACIN
     Indication: INFECTION PROPHYLAXIS
     Route: 048
     Dates: start: 20180214, end: 20180226
  27. FLUCONAZOLE. [Concomitant]
     Active Substance: FLUCONAZOLE
     Indication: INFECTION PROPHYLAXIS
     Route: 048
     Dates: start: 20180215, end: 20180226
  28. VANCOMYCIN [Concomitant]
     Active Substance: VANCOMYCIN
     Indication: NEUTROPENIA
     Route: 042
     Dates: start: 20180217, end: 20180217
  29. VANCOMYCIN [Concomitant]
     Active Substance: VANCOMYCIN
     Route: 042
     Dates: start: 20180218, end: 20180218
  30. VANCOMYCIN [Concomitant]
     Active Substance: VANCOMYCIN
     Route: 042
     Dates: start: 20180219, end: 20180219
  31. DIPHENHYDRAMINE. [Concomitant]
     Active Substance: DIPHENHYDRAMINE
     Indication: PROPHYLAXIS
     Route: 042
     Dates: start: 20180227, end: 20180227
  32. MIDAZOLAM [Concomitant]
     Active Substance: MIDAZOLAM HYDROCHLORIDE
     Indication: SEDATION
     Dosage: CONTINUOUS INFUSION
     Route: 042
     Dates: start: 20180304, end: 20180323
  33. LEVOFLOXACIN. [Concomitant]
     Active Substance: LEVOFLOXACIN
     Indication: INFECTION PROPHYLAXIS
     Route: 048
     Dates: start: 20180122, end: 20180214
  34. VENETOCLAX. [Suspect]
     Active Substance: VENETOCLAX
     Indication: ACUTE MYELOID LEUKAEMIA
     Route: 048
     Dates: start: 20180214, end: 20180214
  35. CLORHEXIDINE 0.12% [Concomitant]
     Indication: PROPHYLAXIS
     Route: 048
     Dates: start: 20180214
  36. LACTULOSE. [Concomitant]
     Active Substance: LACTULOSE
     Indication: CONSTIPATION
     Route: 048
     Dates: start: 20180214, end: 20180310
  37. FUROSEMIDA [Concomitant]
     Active Substance: FUROSEMIDE
     Indication: WEIGHT INCREASED
     Route: 042
     Dates: start: 20180221, end: 20180221
  38. DIPHENHYDRAMINE. [Concomitant]
     Active Substance: DIPHENHYDRAMINE
     Indication: TRANSFUSION
  39. FENTANIL [Concomitant]
     Active Substance: FENTANYL
     Indication: SEDATION
     Dosage: CONTINUOUS INFUSION
     Route: 042
     Dates: start: 20180204, end: 20180323
  40. VANCOMYCIN [Concomitant]
     Active Substance: VANCOMYCIN
     Indication: SKIN INFECTION
     Route: 042
     Dates: start: 20180216, end: 20180216
  41. RASBURICASE [Concomitant]
     Active Substance: RASBURICASE
     Indication: PROPHYLAXIS
     Route: 048
     Dates: start: 20180214, end: 20180215
  42. VENETOCLAX. [Suspect]
     Active Substance: VENETOCLAX
     Route: 048
     Dates: start: 20180215, end: 20180215
  43. ALLOPURINOL. [Concomitant]
     Active Substance: ALLOPURINOL
     Indication: PROPHYLAXIS
     Route: 048
     Dates: start: 20180214, end: 20180215
  44. NORMAL SALINE SOLUTION [Concomitant]
     Route: 042
     Dates: start: 20180218, end: 20180218
  45. MEROPENEM. [Concomitant]
     Active Substance: MEROPENEM
     Indication: NEUTROPENIA
     Route: 042
     Dates: start: 20180101, end: 20180321
  46. FUROSEMIDA [Concomitant]
     Active Substance: FUROSEMIDE
     Indication: FLUID BALANCE NEGATIVE
     Route: 042
     Dates: start: 20180217, end: 20180217
  47. CEFEPIME [Concomitant]
     Active Substance: CEFEPIME HYDROCHLORIDE
     Indication: FEBRILE NEUTROPENIA
     Route: 042
     Dates: start: 20180227, end: 20180301
  48. DIPIRONE [Concomitant]
     Active Substance: METAMIZOLE SODIUM
     Indication: PROPHYLAXIS
  49. CADUET [Concomitant]
     Active Substance: AMLODIPINE BESYLATE\ATORVASTATIN CALCIUM
     Indication: HYPERTENSION
     Route: 048
     Dates: start: 2003, end: 20180214

REACTIONS (4)
  - Respiratory failure [Not Recovered/Not Resolved]
  - Pseudomonal bacteraemia [Not Recovered/Not Resolved]
  - Septic shock [Fatal]
  - Atrial fibrillation [Recovered/Resolved]

NARRATIVE: CASE EVENT DATE: 20180227
